FAERS Safety Report 5580101-5 (Version None)
Quarter: 2008Q1

REPORT INFORMATION
  Report Type: 
  Country: None (occurrence: None)
  Receive Date: 20080103
  Receipt Date: 20071221
  Transmission Date: 20080703
  Serious: Yes (Other)
  Sender: FDA-Public Use
  Company Number: SE-NOVOPROD-270592

PATIENT
  Age: 57 Year
  Sex: Male

DRUGS (1)
  1. NORDITROPIN [Suspect]
     Indication: GROWTH HORMONE DEFICIENCY
     Dates: start: 19941215

REACTIONS (2)
  - PULMONARY EMBOLISM [None]
  - VENOUS THROMBOSIS [None]
